FAERS Safety Report 10380747 (Version 2)
Quarter: 2014Q3

REPORT INFORMATION
  Report Type: Spontaneous
  Country: US (occurrence: US)
  Receive Date: 20140813
  Receipt Date: 20140813
  Transmission Date: 20150326
  Serious: No
  Sender: FDA-Public Use
  Company Number: US-DRREDDYS-USA/USA/14/0040186

PATIENT
  Age: 48 Year
  Sex: Male
  Weight: 172.3 kg

DRUGS (5)
  1. PROZAC [Concomitant]
     Active Substance: FLUOXETINE HYDROCHLORIDE
     Indication: PRODUCT USED FOR UNKNOWN INDICATION
     Route: 065
  2. BUSPAR [Concomitant]
     Active Substance: BUSPIRONE HYDROCHLORIDE
     Indication: PRODUCT USED FOR UNKNOWN INDICATION
     Route: 065
  3. CLONAZEPAM. [Concomitant]
     Active Substance: CLONAZEPAM
     Indication: PRODUCT USED FOR UNKNOWN INDICATION
     Route: 065
  4. OLANZAPINE FILM-COATED TABLET 20 MG [Suspect]
     Active Substance: OLANZAPINE
     Indication: SCHIZOPHRENIA
     Route: 048
     Dates: start: 2013
  5. WELLBUTRIN [Concomitant]
     Active Substance: BUPROPION HYDROCHLORIDE
     Indication: PRODUCT USED FOR UNKNOWN INDICATION
     Route: 065

REACTIONS (4)
  - Appetite disorder [Not Recovered/Not Resolved]
  - Food craving [Not Recovered/Not Resolved]
  - Weight increased [Not Recovered/Not Resolved]
  - Blood glucose increased [Recovering/Resolving]
